FAERS Safety Report 10583772 (Version 2)
Quarter: 2014Q4

REPORT INFORMATION
  Report Type: Spontaneous
  Country: US (occurrence: US)
  Receive Date: 20141114
  Receipt Date: 20141201
  Transmission Date: 20150529
  Serious: Yes (Life-Threatening, Hospitalization)
  Sender: FDA-Public Use
  Company Number: US-BAYER-2014-165652

PATIENT
  Age: 27 Year
  Sex: Female

DRUGS (1)
  1. MIRENA [Suspect]
     Active Substance: LEVONORGESTREL
     Dosage: 20 MCG/24HR, CONT
     Route: 015
     Dates: start: 20090911, end: 20100118

REACTIONS (12)
  - Injury [None]
  - Emotional distress [None]
  - Medical device discomfort [None]
  - Device dislocation [None]
  - Pelvic pain [None]
  - General physical health deterioration [None]
  - Anhedonia [None]
  - Pelvic adhesions [None]
  - Device dislocation [None]
  - Abdominal pain lower [None]
  - Gait disturbance [None]
  - Anxiety [None]

NARRATIVE: CASE EVENT DATE: 20100104
